FAERS Safety Report 9050577 (Version 3)
Quarter: 2013Q2

REPORT INFORMATION
  Report Type: Spontaneous
  Country: JP (occurrence: JP)
  Receive Date: 20130205
  Receipt Date: 20130401
  Transmission Date: 20140414
  Serious: Yes (Death, Hospitalization)
  Sender: FDA-Public Use
  Company Number: JP-B.I. PHARMACEUTICALS,INC./RIDGEFIELD-2013-BI-00822NB

PATIENT
  Age: 41 Year
  Sex: Male

DRUGS (3)
  1. SPIRIVA [Suspect]
     Indication: ASTHMA
     Dosage: 5 MCG
     Route: 055
     Dates: start: 20121217
  2. ADOAIR [Concomitant]
     Indication: ASTHMA
     Dosage: 2 PUF
     Route: 055
     Dates: start: 20121217
  3. SULTANOL [Concomitant]
     Indication: ASTHMA
     Dosage: 4 PUF
     Route: 055
     Dates: start: 20110914

REACTIONS (5)
  - Loss of consciousness [Fatal]
  - Cardio-respiratory arrest [Fatal]
  - Brain oedema [Fatal]
  - Asthma [Fatal]
  - Off label use [Unknown]
